FAERS Safety Report 6847366-0 (Version None)
Quarter: 2010Q3

REPORT INFORMATION
  Report Type: 
  Country: None (occurrence: None)
  Receive Date: 20100716
  Receipt Date: 20100707
  Transmission Date: 20110219
  Serious: Yes (Life-Threatening, Hospitalization)
  Sender: FDA-Public Use
  Company Number: AU-NAPPMUNDI-USA-2010-0044725

PATIENT
  Sex: Female

DRUGS (7)
  1. NORSPAN 10 MG [Suspect]
     Indication: ARTHRALGIA
     Dosage: 10 MCG, Q1H
     Route: 062
     Dates: start: 20100501, end: 20100612
  2. NORSPAN 10 MG [Suspect]
  3. ASPIRIN [Concomitant]
     Dosage: 100 MG, DAILY
     Dates: end: 20100613
  4. PANADOL                            /00020001/ [Concomitant]
     Dosage: UNK
     Dates: end: 20100613
  5. RISPERDAL [Concomitant]
     Dosage: UNK
     Dates: end: 20100613
  6. MIRTAZAPINE [Concomitant]
     Dosage: UNK
     Dates: end: 20100613
  7. VITAMIN A [Concomitant]
     Dosage: UNK
     Dates: end: 20100613

REACTIONS (5)
  - ABDOMINAL DISTENSION [None]
  - ABDOMINAL PAIN [None]
  - CHOLELITHIASIS [None]
  - DEPRESSED LEVEL OF CONSCIOUSNESS [None]
  - PANCREATITIS ACUTE [None]
